FAERS Safety Report 25774847 (Version 1)
Quarter: 2025Q3

REPORT INFORMATION
  Report Type: Spontaneous
  Country: CA (occurrence: CA)
  Receive Date: 20250908
  Receipt Date: 20250908
  Transmission Date: 20251021
  Serious: Yes (Other)
  Sender: MYLAN
  Company Number: CA-MYLANLABS-2025M1076142

PATIENT
  Age: 82 Year
  Sex: Female

DRUGS (52)
  1. AMLODIPINE [Suspect]
     Active Substance: AMLODIPINE BESYLATE
     Indication: Product used for unknown indication
  2. AMLODIPINE [Suspect]
     Active Substance: AMLODIPINE BESYLATE
     Route: 065
  3. AMLODIPINE [Suspect]
     Active Substance: AMLODIPINE BESYLATE
     Route: 065
  4. AMLODIPINE [Suspect]
     Active Substance: AMLODIPINE BESYLATE
  5. CAMZYOS [Suspect]
     Active Substance: MAVACAMTEN
     Indication: Hypertrophic cardiomyopathy
     Dosage: 10 MILLIGRAM, QD (1 EVERY 1 DAYS)
  6. CAMZYOS [Suspect]
     Active Substance: MAVACAMTEN
     Dosage: 10 MILLIGRAM, QD (1 EVERY 1 DAYS)
     Route: 048
  7. CAMZYOS [Suspect]
     Active Substance: MAVACAMTEN
     Dosage: 10 MILLIGRAM, QD (1 EVERY 1 DAYS)
     Route: 048
  8. CAMZYOS [Suspect]
     Active Substance: MAVACAMTEN
     Dosage: 10 MILLIGRAM, QD (1 EVERY 1 DAYS)
  9. CAMZYOS [Suspect]
     Active Substance: MAVACAMTEN
     Indication: Hypertrophic cardiomyopathy
     Dosage: 5 MILLIGRAM, QD (1 EVERY 1 DAYS)
  10. CAMZYOS [Suspect]
     Active Substance: MAVACAMTEN
     Dosage: 5 MILLIGRAM, QD (1 EVERY 1 DAYS)
     Route: 048
  11. CAMZYOS [Suspect]
     Active Substance: MAVACAMTEN
     Dosage: 5 MILLIGRAM, QD (1 EVERY 1 DAYS)
     Route: 048
  12. CAMZYOS [Suspect]
     Active Substance: MAVACAMTEN
     Dosage: 5 MILLIGRAM, QD (1 EVERY 1 DAYS)
  13. CALCIUM [Concomitant]
     Active Substance: CALCIUM
     Indication: Product used for unknown indication
  14. CALCIUM [Concomitant]
     Active Substance: CALCIUM
     Route: 065
  15. CALCIUM [Concomitant]
     Active Substance: CALCIUM
     Route: 065
  16. CALCIUM [Concomitant]
     Active Substance: CALCIUM
  17. CALCIUM\CHOLECALCIFEROL [Concomitant]
     Active Substance: CALCIUM\CHOLECALCIFEROL
  18. CALCIUM\CHOLECALCIFEROL [Concomitant]
     Active Substance: CALCIUM\CHOLECALCIFEROL
     Route: 065
  19. CALCIUM\CHOLECALCIFEROL [Concomitant]
     Active Substance: CALCIUM\CHOLECALCIFEROL
     Route: 065
  20. CALCIUM\CHOLECALCIFEROL [Concomitant]
     Active Substance: CALCIUM\CHOLECALCIFEROL
  21. COLACE [Concomitant]
     Active Substance: DOCUSATE SODIUM
     Indication: Product used for unknown indication
  22. COLACE [Concomitant]
     Active Substance: DOCUSATE SODIUM
     Route: 065
  23. COLACE [Concomitant]
     Active Substance: DOCUSATE SODIUM
     Route: 065
  24. COLACE [Concomitant]
     Active Substance: DOCUSATE SODIUM
  25. CRANBERRY [Concomitant]
     Active Substance: CRANBERRY
     Indication: Product used for unknown indication
  26. CRANBERRY [Concomitant]
     Active Substance: CRANBERRY
     Route: 065
  27. CRANBERRY [Concomitant]
     Active Substance: CRANBERRY
     Route: 065
  28. CRANBERRY [Concomitant]
     Active Substance: CRANBERRY
  29. RAMIPRIL [Concomitant]
     Active Substance: RAMIPRIL
  30. RAMIPRIL [Concomitant]
     Active Substance: RAMIPRIL
     Route: 065
  31. RAMIPRIL [Concomitant]
     Active Substance: RAMIPRIL
     Route: 065
  32. RAMIPRIL [Concomitant]
     Active Substance: RAMIPRIL
  33. ROSUVASTATIN [Concomitant]
     Active Substance: ROSUVASTATIN
  34. ROSUVASTATIN [Concomitant]
     Active Substance: ROSUVASTATIN
     Route: 058
  35. ROSUVASTATIN [Concomitant]
     Active Substance: ROSUVASTATIN
     Route: 058
  36. ROSUVASTATIN [Concomitant]
     Active Substance: ROSUVASTATIN
  37. SODIUM ALGINATE\SODIUM BICARBONATE [Concomitant]
     Active Substance: SODIUM ALGINATE\SODIUM BICARBONATE
     Indication: Product used for unknown indication
  38. SODIUM ALGINATE\SODIUM BICARBONATE [Concomitant]
     Active Substance: SODIUM ALGINATE\SODIUM BICARBONATE
     Route: 065
  39. SODIUM ALGINATE\SODIUM BICARBONATE [Concomitant]
     Active Substance: SODIUM ALGINATE\SODIUM BICARBONATE
     Route: 065
  40. SODIUM ALGINATE\SODIUM BICARBONATE [Concomitant]
     Active Substance: SODIUM ALGINATE\SODIUM BICARBONATE
  41. UBIDECARENONE [Concomitant]
     Active Substance: UBIDECARENONE
     Indication: Product used for unknown indication
  42. UBIDECARENONE [Concomitant]
     Active Substance: UBIDECARENONE
     Route: 065
  43. UBIDECARENONE [Concomitant]
     Active Substance: UBIDECARENONE
     Route: 065
  44. UBIDECARENONE [Concomitant]
     Active Substance: UBIDECARENONE
  45. VITAMIN D NOS [Concomitant]
     Active Substance: CHOLECALCIFEROL\ERGOCALCIFEROL
     Indication: Product used for unknown indication
  46. VITAMIN D NOS [Concomitant]
     Active Substance: CHOLECALCIFEROL\ERGOCALCIFEROL
     Route: 065
  47. VITAMIN D NOS [Concomitant]
     Active Substance: CHOLECALCIFEROL\ERGOCALCIFEROL
     Route: 065
  48. VITAMIN D NOS [Concomitant]
     Active Substance: CHOLECALCIFEROL\ERGOCALCIFEROL
  49. ZEAXANTHIN [Concomitant]
     Active Substance: ZEAXANTHIN
     Indication: Product used for unknown indication
  50. ZEAXANTHIN [Concomitant]
     Active Substance: ZEAXANTHIN
     Route: 065
  51. ZEAXANTHIN [Concomitant]
     Active Substance: ZEAXANTHIN
     Route: 065
  52. ZEAXANTHIN [Concomitant]
     Active Substance: ZEAXANTHIN

REACTIONS (9)
  - Arthritis [Not Recovered/Not Resolved]
  - Atrial fibrillation [Not Recovered/Not Resolved]
  - Blood pressure diastolic increased [Not Recovered/Not Resolved]
  - Blood pressure fluctuation [Not Recovered/Not Resolved]
  - Contusion [Not Recovered/Not Resolved]
  - Fall [Not Recovered/Not Resolved]
  - Influenza [Not Recovered/Not Resolved]
  - Oedema peripheral [Not Recovered/Not Resolved]
  - Pain [Not Recovered/Not Resolved]
